FAERS Safety Report 21006415 (Version 1)
Quarter: 2022Q2

REPORT INFORMATION
  Report Type: Report from Study
  Country: US (occurrence: US)
  Receive Date: 20220624
  Receipt Date: 20220624
  Transmission Date: 20220721
  Serious: Yes (Other)
  Sender: FDA-Public Use
  Company Number: US-UCBSA-2022034140

PATIENT
  Age: 0 Year
  Sex: Female

DRUGS (16)
  1. CERTOLIZUMAB PEGOL [Suspect]
     Active Substance: CERTOLIZUMAB PEGOL
     Indication: Rheumatoid arthritis
     Dosage: 200 MILLIGRAM, EV 2 MONTHS
     Route: 064
     Dates: start: 20180607, end: 20181011
  2. CHOLINE [Concomitant]
     Active Substance: CHOLINE
     Indication: Nutritional supplementation
     Dosage: 500 MILLIGRAM, ONCE DAILY (QD)
     Route: 064
     Dates: start: 20180920, end: 20181123
  3. COFFEE COAL [Concomitant]
     Indication: Product used for unknown indication
     Dosage: UNK
     Route: 064
     Dates: start: 20180302, end: 20181123
  4. DIETARY SUPPLEMENT [Concomitant]
     Active Substance: DIETARY SUPPLEMENT
     Indication: Product used for unknown indication
     Dosage: 200 MILLIGRAM, ONCE DAILY (QD)
     Route: 064
     Dates: start: 20180302, end: 20181123
  5. CLARITHROMYCIN [Concomitant]
     Active Substance: CLARITHROMYCIN
     Indication: Urinary tract infection
     Dosage: 1 PILL, 2X/DAY (BID)
     Route: 064
     Dates: start: 20180701, end: 20180705
  6. MINERALS\VITAMINS [Concomitant]
     Active Substance: MINERALS\VITAMINS
     Indication: Product used for unknown indication
     Dosage: 1 PILL, ONCE DAILY (QD)
     Route: 064
     Dates: start: 20180302, end: 20181123
  7. PROBIOTICS NOS [Concomitant]
     Active Substance: PROBIOTICS NOS
     Indication: Product used for unknown indication
     Dosage: 1 PILL, ONCE DAILY (QD)
     Route: 064
     Dates: start: 20180302, end: 20181123
  8. TYLENOL [Concomitant]
     Active Substance: ACETAMINOPHEN
     Indication: Migraine
     Dosage: 325 MILLIGRAM, EV 2 MONTHS
     Route: 064
     Dates: start: 20180302, end: 20180715
  9. INFLUENZA VIRUS VACCINE [Concomitant]
     Active Substance: INFLUENZA VIRUS VACCINE
     Indication: Influenza
     Dosage: 1 SHOT, 1 DAY
     Route: 064
     Dates: start: 20181030, end: 20181030
  10. TETANUS TOXOID, REDUCED DIPHTHERIA TOXOID AND ACELLULAR PERTUSSIS VACC [Concomitant]
     Active Substance: TETANUS TOXOID, REDUCED DIPHTHERIA TOXOID AND ACELLULAR PERTUSSIS VACCINE ADSORBED, TDAP
     Indication: Tetanus
     Dosage: 1 SHOT, 1 DAY
     Route: 064
     Dates: start: 20181012, end: 20181012
  11. TETANUS TOXOID, REDUCED DIPHTHERIA TOXOID AND ACELLULAR PERTUSSIS VACC [Concomitant]
     Active Substance: TETANUS TOXOID, REDUCED DIPHTHERIA TOXOID AND ACELLULAR PERTUSSIS VACCINE ADSORBED, TDAP
     Indication: Diphtheria
  12. TETANUS TOXOID, REDUCED DIPHTHERIA TOXOID AND ACELLULAR PERTUSSIS VACC [Concomitant]
     Active Substance: TETANUS TOXOID, REDUCED DIPHTHERIA TOXOID AND ACELLULAR PERTUSSIS VACCINE ADSORBED, TDAP
     Indication: Pertussis
  13. SULFASALAZINE [Concomitant]
     Active Substance: SULFASALAZINE
     Indication: Rheumatoid arthritis
     Dosage: UNK
     Route: 064
     Dates: start: 20180523, end: 20180525
  14. PROGESTERONE [Concomitant]
     Active Substance: PROGESTERONE
     Indication: In vitro fertilisation
     Dosage: UNK
     Route: 064
     Dates: start: 20180201, end: 20180427
  15. PROGESTERONE [Concomitant]
     Active Substance: PROGESTERONE
     Indication: In vitro fertilisation
     Dosage: UNK
     Route: 064
     Dates: start: 20180201, end: 20180427
  16. HYDROXYCHLOROQUINE DIPHOSPHATE [Concomitant]
     Active Substance: HYDROXYCHLOROQUINE DIPHOSPHATE
     Indication: Rheumatoid arthritis
     Dosage: 200 MILLIGRAM, ONCE DAILY (QD)
     Route: 064
     Dates: start: 20180509, end: 20180522

REACTIONS (2)
  - Gross motor delay [Unknown]
  - Maternal exposure during pregnancy [Unknown]

NARRATIVE: CASE EVENT DATE: 20180607
